FAERS Safety Report 12554537 (Version 1)
Quarter: 2016Q3

REPORT INFORMATION
  Report Type: Spontaneous
  Country: US (occurrence: US)
  Receive Date: 20160713
  Receipt Date: 20160713
  Transmission Date: 20161109
  Serious: No
  Sender: FDA-Public Use
  Company Number: US-ROCHE-1740964

PATIENT
  Age: 41 Year
  Sex: Female

DRUGS (5)
  1. TAXOTERE [Suspect]
     Active Substance: DOCETAXEL
     Indication: BREAST CANCER
     Dosage: AS NEOADJUVANT THERAPY
     Route: 065
  2. PERJETA [Suspect]
     Active Substance: PERTUZUMAB
     Indication: BREAST CANCER
     Dosage: LOADING DOSE?AS NEOADJUVANT THERAPY
     Route: 065
     Dates: start: 20151231, end: 20151231
  3. CARBOPLATIN. [Suspect]
     Active Substance: CARBOPLATIN
     Indication: BREAST CANCER
     Dosage: AS NEOADJUVANT THERAPY
     Route: 065
     Dates: start: 20160302
  4. PERJETA [Suspect]
     Active Substance: PERTUZUMAB
     Dosage: MAINTAINENCE DOSE
     Route: 065
     Dates: end: 20160302
  5. HERCEPTIN [Suspect]
     Active Substance: TRASTUZUMAB
     Indication: BREAST CANCER
     Dosage: AS NEOADJUVANT THERAPY
     Route: 065

REACTIONS (11)
  - Erythema [Recovering/Resolving]
  - Wound secretion [Unknown]
  - Abasia [Unknown]
  - Nail disorder [Not Recovered/Not Resolved]
  - Palmar-plantar erythrodysaesthesia syndrome [Recovering/Resolving]
  - Wound complication [Unknown]
  - Palmar erythema [Not Recovered/Not Resolved]
  - Pyrexia [Unknown]
  - Swelling [Recovering/Resolving]
  - Diarrhoea [Unknown]
  - Secretion discharge [Not Recovered/Not Resolved]

NARRATIVE: CASE EVENT DATE: 2016
